FAERS Safety Report 13798546 (Version 1)
Quarter: 2017Q3

REPORT INFORMATION
  Report Type: Spontaneous
  Country: US (occurrence: US)
  Receive Date: 20170727
  Receipt Date: 20170727
  Transmission Date: 20171127
  Serious: Yes (Life-Threatening)
  Sender: FDA-Public Use
  Company Number: US-PFIZER INC-2428604

PATIENT

DRUGS (2)
  1. CLOFARABINE. [Suspect]
     Active Substance: CLOFARABINE
     Indication: ACUTE LEUKAEMIA
     Dosage: 40 MG/M2, FREQ: 1 DAY; INTERVAL : 1
  2. CYTARABINE. [Suspect]
     Active Substance: CYTARABINE
     Indication: ACUTE LEUKAEMIA
     Dosage: 1 G/M^2, FREQ: 1 DAY; INTERVAL: 1

REACTIONS (1)
  - Toxic skin eruption [Unknown]
